FAERS Safety Report 8415396-3 (Version None)
Quarter: 2012Q2

REPORT INFORMATION
  Report Type: 
  Country: None (occurrence: None)
  Receive Date: 20120606
  Receipt Date: 20120601
  Transmission Date: 20120825
  Serious: Yes (Other)
  Sender: FDA-Public Use
  Company Number: PHEH2012US008160

PATIENT
  Sex: Female

DRUGS (2)
  1. LETROZOLE [Suspect]
     Indication: BREAST CANCER
     Dosage: 01 MG, QD
     Route: 048
     Dates: start: 20120201, end: 20120401
  2. FEMARA [Suspect]
     Indication: BREAST CANCER

REACTIONS (1)
  - BLOOD OESTROGEN INCREASED [None]
